FAERS Safety Report 9026760 (Version 1)
Quarter: 2013Q1

REPORT INFORMATION
  Report Type: Spontaneous
  Country: US (occurrence: None)
  Receive Date: 20130109
  Receipt Date: 20130109
  Transmission Date: 20140127
  Serious: Yes (Other)
  Sender: FDA-Public Use
  Company Number: ALL020130001

PATIENT
  Age: 65 Year
  Sex: Male

DRUGS (6)
  1. ALLOPURINOL TABLETS (ALLOPURINOL) (TABLETS) [Suspect]
     Indication: HYPERURICAEMIA
     Route: 048
     Dates: start: 19980221, end: 19980411
  2. RIFAMPIN (RIFAMPICIN) [Concomitant]
  3. ISONIAZID (ISONIAZID) [Concomitant]
  4. ETHAMBUTOL (ETHAMBUTOL) [Concomitant]
  5. LEVOFLOXACIN (LEVOFLOXACIN) [Concomitant]
  6. PREDNISOLONE [Concomitant]

REACTIONS (1)
  - Drug reaction with eosinophilia and systemic symptoms [None]
